FAERS Safety Report 10314917 (Version 3)
Quarter: 2014Q3

REPORT INFORMATION
  Report Type: Spontaneous
  Country: US (occurrence: US)
  Receive Date: 20140718
  Receipt Date: 20140807
  Transmission Date: 20150326
  Serious: Yes (Other)
  Sender: FDA-Public Use
  Company Number: US-PFIZER INC-2014197411

PATIENT
  Sex: Male

DRUGS (2)
  1. VIAGRA [Suspect]
     Active Substance: SILDENAFIL CITRATE
     Dosage: TOOK ONLY A QUATER OF THE PILL
  2. VIAGRA [Suspect]
     Active Substance: SILDENAFIL CITRATE
     Dosage: 100 MG, UNK

REACTIONS (7)
  - Blindness [Unknown]
  - Vision blurred [Unknown]
  - Eye irritation [Unknown]
  - Deafness [Unknown]
  - Vitreous floaters [Unknown]
  - Visual impairment [Unknown]
  - Hearing impaired [Unknown]
